FAERS Safety Report 8503900-6 (Version None)
Quarter: 2012Q3

REPORT INFORMATION
  Report Type: 
  Country: None (occurrence: None)
  Receive Date: 20120711
  Receipt Date: 20120703
  Transmission Date: 20120928
  Serious: Yes (Other)
  Sender: FDA-Public Use
  Company Number: JP-BRISTOL-MYERS SQUIBB COMPANY-16753048

PATIENT
  Age: 60 Year
  Sex: Male

DRUGS (2)
  1. AKINETON [Concomitant]
     Dosage: 1DF= TABS
  2. ABILIFY [Suspect]
     Indication: SCHIZOPHRENIA
     Dosage: 0.1%
     Route: 048
     Dates: end: 20120626

REACTIONS (1)
  - ILEUS [None]
